FAERS Safety Report 21299622 (Version 1)
Quarter: 2022Q3

REPORT INFORMATION
  Report Type: Spontaneous
  Country: RU (occurrence: RU)
  Receive Date: 20220906
  Receipt Date: 20220906
  Transmission Date: 20221026
  Serious: Yes (Other)
  Sender: FDA-Public Use
  Company Number: RU-NOVARTISPH-NVSC2022RU200323

PATIENT
  Age: 42 Year
  Sex: Female
  Weight: 55 kg

DRUGS (1)
  1. ZYKADIA [Suspect]
     Active Substance: CERITINIB
     Indication: Lung carcinoma cell type unspecified stage IV
     Dosage: UNK (450 DAYS)
     Route: 048
     Dates: start: 20220823, end: 20220825

REACTIONS (1)
  - Tremor [Recovered/Resolved with Sequelae]

NARRATIVE: CASE EVENT DATE: 20220825
